FAERS Safety Report 5920882-1 (Version None)
Quarter: 2008Q4

REPORT INFORMATION
  Report Type: 
  Country: None (occurrence: None)
  Receive Date: 20081015
  Receipt Date: 20081015
  Transmission Date: 20090506
  Serious: No
  Sender: FDA-Public Use
  Company Number: None

PATIENT
  Age: 39 Year
  Sex: Male
  Weight: 67.1324 kg

DRUGS (1)
  1. AVELOX [Suspect]
     Indication: SINUSITIS
     Dosage: 1 A DAY PO
     Route: 048
     Dates: start: 20080905, end: 20080908

REACTIONS (6)
  - ANXIETY [None]
  - ARRHYTHMIA [None]
  - MUSCULAR WEAKNESS [None]
  - PANIC ATTACK [None]
  - TENDONITIS [None]
  - TINNITUS [None]
